FAERS Safety Report 8258972-3 (Version None)
Quarter: 2012Q2

REPORT INFORMATION
  Report Type: 
  Country: None (occurrence: None)
  Receive Date: 20120403
  Receipt Date: 20120403
  Transmission Date: 20120825
  Serious: Yes (Death)
  Sender: FDA-Public Use
  Company Number: None

PATIENT
  Sex: Female
  Weight: 66 kg

DRUGS (2)
  1. CYTARABINE [Suspect]
     Dosage: 1050 MG
     Dates: end: 20120318
  2. DAUNORUBICIN HCL [Suspect]
     Dosage: 294 MG
     Dates: end: 20120314

REACTIONS (1)
  - SEPSIS [None]
